FAERS Safety Report 6658024-X (Version None)
Quarter: 2010Q1

REPORT INFORMATION
  Report Type: 
  Country: None (occurrence: None)
  Receive Date: 20100330
  Receipt Date: 20100322
  Transmission Date: 20100710
  Serious: Yes (Hospitalization)
  Sender: FDA-Public Use
  Company Number: US-BAYER-201016978NA

PATIENT
  Age: 36 Year
  Sex: Female

DRUGS (6)
  1. BETASERON [Suspect]
     Indication: RELAPSING-REMITTING MULTIPLE SCLEROSIS
     Dosage: ON AND OFF
     Route: 058
     Dates: start: 19940101, end: 20060101
  2. CYMBALTA [Concomitant]
  3. TRAZEDONE [Concomitant]
  4. GABAPENTIN [Concomitant]
  5. SIMVASTATIN [Concomitant]
  6. OXYBUTYNIN CHLORIDE [Concomitant]

REACTIONS (1)
  - MULTIPLE SCLEROSIS RELAPSE [None]
